FAERS Safety Report 22659582 (Version 1)
Quarter: 2023Q2

REPORT INFORMATION
  Report Type: Spontaneous
  Country: JP (occurrence: JP)
  Receive Date: 20230630
  Receipt Date: 20230630
  Transmission Date: 20230722
  Serious: Yes (Hospitalization, Other)
  Sender: FDA-Public Use
  Company Number: JP-GLAXOSMITHKLINE-JP2023JPN088786

PATIENT

DRUGS (4)
  1. VALTREX [Suspect]
     Active Substance: VALACYCLOVIR HYDROCHLORIDE
     Indication: Herpes zoster
     Dosage: 3000 MG, QD
  2. ZOVIRAX [Suspect]
     Active Substance: ACYCLOVIR
     Dosage: UNK
  3. MIROGABALIN BESYLATE [Concomitant]
     Active Substance: MIROGABALIN BESYLATE
     Indication: Herpes zoster
     Dosage: 1 MG, QD
  4. LOXOPROFEN SODIUM [Concomitant]
     Active Substance: LOXOPROFEN SODIUM
     Indication: Herpes zoster
     Dosage: 18 MG, QD

REACTIONS (5)
  - Toxic encephalopathy [Unknown]
  - Acute kidney injury [Unknown]
  - Altered state of consciousness [Recovering/Resolving]
  - Fall [Unknown]
  - Anuria [Unknown]
